FAERS Safety Report 25477116 (Version 3)
Quarter: 2025Q3

REPORT INFORMATION
  Report Type: Report from Study
  Country: GB (occurrence: GB)
  Receive Date: 20250625
  Receipt Date: 20250729
  Transmission Date: 20251020
  Serious: Yes (Hospitalization)
  Sender: ABBVIE
  Company Number: GB-ABBVIE-6340922

PATIENT
  Age: 60 Year
  Sex: Female

DRUGS (1)
  1. SKYRIZI [Suspect]
     Active Substance: RISANKIZUMAB-RZAA
     Indication: Crohn^s disease
     Dosage: 360MG/2.4ML, 1.00 EA
     Route: 058

REACTIONS (2)
  - Gastrointestinal disorder [Recovering/Resolving]
  - Decreased appetite [Recovering/Resolving]
